FAERS Safety Report 10188478 (Version 1)
Quarter: 2014Q2

REPORT INFORMATION
  Report Type: Spontaneous
  Country: US (occurrence: US)
  Receive Date: 20140522
  Receipt Date: 20140522
  Transmission Date: 20141212
  Serious: No
  Sender: FDA-Public Use
  Company Number: US-SA-2014SA031505

PATIENT
  Age: 48 Year
  Sex: Male
  Weight: 140 kg

DRUGS (8)
  1. LANTUS SOLOSTAR [Suspect]
     Indication: TYPE 2 DIABETES MELLITUS
     Dosage: DOSE IS 15-17 U DAILY.
     Route: 058
     Dates: start: 20131118
  2. LANTUS SOLOSTAR [Suspect]
     Indication: TYPE 2 DIABETES MELLITUS
     Dosage: DOSE IS 15-17 U DAILY. DOSE:15 UNIT(S)
     Route: 058
     Dates: start: 20131205
  3. SOLOSTAR [Concomitant]
     Indication: DEVICE THERAPY
  4. CLONIDINE [Concomitant]
     Indication: HYPERTENSION
     Dosage: THE DOSE WAS REPORTED AS 0.2,UNITS UNKNOWN
  5. CARVEDILOL [Concomitant]
     Indication: HYPERTENSION
     Dosage: THE DOSE WAS REPORTED TO BE 25,UNITS UNKNOWN
  6. NIFEDIPINE [Concomitant]
     Dosage: THE DOSE WAS REPORTED AS 90,UNIT NOT REPORTED
  7. HYDROCHLOROTHIAZIDE [Concomitant]
     Indication: HYPERTENSION
     Dosage: THE DOSE WAS REPORTED AS 12.5,UNITS UNKNOWN
  8. CRESTOR [Concomitant]
     Indication: HYPERTENSION
     Dosage: DOSE REPORTED AS 10,UNITS UNKNOWN

REACTIONS (1)
  - Dental discomfort [Unknown]
